FAERS Safety Report 22146002 (Version 1)
Quarter: 2023Q1

REPORT INFORMATION
  Report Type: Spontaneous
  Country: US (occurrence: US)
  Receive Date: 20230328
  Receipt Date: 20230328
  Transmission Date: 20230418
  Serious: No
  Sender: FDA-Public Use
  Company Number: US-ELI_LILLY_AND_COMPANY-US202303014078

PATIENT
  Age: 26 Year
  Sex: Female

DRUGS (1)
  1. EMGALITY [Interacting]
     Active Substance: GALCANEZUMAB-GNLM
     Indication: Migraine prophylaxis
     Dosage: UNK UNK, UNKNOWN
     Route: 065

REACTIONS (2)
  - Galactorrhoea [Not Recovered/Not Resolved]
  - Drug interaction [Not Recovered/Not Resolved]
